FAERS Safety Report 5988300-5 (Version None)
Quarter: 2008Q4

REPORT INFORMATION
  Report Type: 
  Country: None (occurrence: None)
  Receive Date: 20081204
  Receipt Date: 20081121
  Transmission Date: 20090506
  Serious: Yes (Other)
  Sender: FDA-Public Use
  Company Number: RENA-1000314

PATIENT
  Age: 29 Year
  Sex: Male

DRUGS (1)
  1. RENAGEL [Suspect]
     Indication: HYPERPHOSPHATAEMIA
     Dosage: 2.4 G TID ORAL
     Route: 048
     Dates: start: 20071201

REACTIONS (2)
  - DRUG INEFFECTIVE [None]
  - WEGENER'S GRANULOMATOSIS [None]
